FAERS Safety Report 20612437 (Version 1)
Quarter: 2022Q1

REPORT INFORMATION
  Report Type: Spontaneous
  Country: ES (occurrence: ES)
  Receive Date: 20220318
  Receipt Date: 20220318
  Transmission Date: 20220423
  Serious: Yes (Other)
  Sender: FDA-Public Use
  Company Number: ES-ALLERGAN-2208941US

PATIENT

DRUGS (1)
  1. OZURDEX [Suspect]
     Active Substance: DEXAMETHASONE
     Indication: Product used for unknown indication
     Dosage: 0.7 MG, SINGLE
     Route: 031
     Dates: start: 20220309, end: 20220309

REACTIONS (3)
  - Blindness [Unknown]
  - Endophthalmitis [Unknown]
  - Haemophilus infection [Unknown]

NARRATIVE: CASE EVENT DATE: 20220301
